FAERS Safety Report 11209224 (Version 4)
Quarter: 2016Q3

REPORT INFORMATION
  Report Type: Spontaneous
  Country: US (occurrence: US)
  Receive Date: 20150622
  Receipt Date: 20160816
  Transmission Date: 20161109
  Serious: Yes (Hospitalization, Disabling, Other)
  Sender: FDA-Public Use
  Company Number: US-009507513-1506USA009475

PATIENT
  Sex: Female
  Weight: 84.35 kg

DRUGS (3)
  1. FOSAMAX [Suspect]
     Active Substance: ALENDRONATE SODIUM
     Indication: OSTEOPOROSIS
     Dosage: 70 MG, QW
     Route: 048
     Dates: start: 20050503, end: 200804
  2. FOSAMAX PLUS D [Suspect]
     Active Substance: ALENDRONATE SODIUM\CHOLECALCIFEROL
     Indication: OSTEOPOROSIS
     Dosage: 70 MG, QW
     Route: 048
     Dates: start: 200804, end: 200901
  3. ALENDRONATE SODIUM. [Suspect]
     Active Substance: ALENDRONATE SODIUM
     Indication: OSTEOPOROSIS
     Dosage: 70 MG, QW
     Route: 048
     Dates: start: 200901, end: 201302

REACTIONS (18)
  - Chronic obstructive pulmonary disease [Unknown]
  - Denture wearer [Unknown]
  - Asthma [Unknown]
  - Stress fracture [Recovered/Resolved]
  - Aortic arteriosclerosis [Unknown]
  - Breast cancer [Unknown]
  - Lumbar radiculopathy [Not Recovered/Not Resolved]
  - Adrenal insufficiency [Unknown]
  - Loose tooth [Unknown]
  - Insomnia [Unknown]
  - Femur fracture [Recovered/Resolved]
  - Osteoporosis [Unknown]
  - Hyperlipidaemia [Unknown]
  - Sinus tachycardia [Unknown]
  - Hypertension [Unknown]
  - Large intestine polyp [Unknown]
  - Pulmonary mass [Unknown]
  - Vitamin D deficiency [Unknown]

NARRATIVE: CASE EVENT DATE: 2005
